FAERS Safety Report 5082300-8 (Version None)
Quarter: 2006Q3

REPORT INFORMATION
  Report Type: 
  Country: None (occurrence: None)
  Receive Date: 20060817
  Receipt Date: 20060808
  Transmission Date: 20061208
  Serious: Yes (Disabling, Other)
  Sender: FDA-Public Use
  Company Number: US-AVENTIS-200616683US

PATIENT
  Age: 55 Year
  Sex: Male

DRUGS (13)
  1. LANTUS [Suspect]
     Indication: DIABETES MELLITUS INSULIN-DEPENDENT
     Dates: start: 20010101, end: 20060808
  2. LANTUS [Suspect]
     Dates: start: 20060809
  3. HUMALOG [Suspect]
     Dosage: DOSE: UNK
  4. ULTRAM [Concomitant]
     Dosage: DOSE: UNK
  5. PLAVIX [Concomitant]
     Dosage: DOSE: UNK
  6. VASOTEC [Concomitant]
     Dosage: DOSE: UNK
  7. FOLIC ACID [Concomitant]
     Dosage: DOSE: UNK
  8. ATENOLOL [Concomitant]
     Dosage: DOSE: UNK
  9. NEXIUM [Concomitant]
     Dosage: DOSE: UNK
  10. ZOCOR [Concomitant]
     Dosage: DOSE: UNK
  11. CARDURA [Concomitant]
     Dosage: DOSE: UNK
  12. ELAVIL [Concomitant]
     Dosage: DOSE: UNK
  13. ANTIDEPRESSANTS [Concomitant]
     Dosage: DOSE: UNK

REACTIONS (12)
  - BLINDNESS [None]
  - BLOOD GLUCOSE INCREASED [None]
  - DIABETIC BLINDNESS [None]
  - DIABETIC EYE DISEASE [None]
  - GAIT DISTURBANCE [None]
  - HYPOGLYCAEMIA [None]
  - IMPAIRED DRIVING ABILITY [None]
  - IMPAIRED WORK ABILITY [None]
  - NEUROPATHY [None]
  - PAIN IN EXTREMITY [None]
  - TREATMENT NONCOMPLIANCE [None]
  - VISUAL ACUITY REDUCED [None]
